FAERS Safety Report 9329923 (Version 1)
Quarter: 2013Q2

REPORT INFORMATION
  Report Type: Spontaneous
  Country: US (occurrence: US)
  Receive Date: 20130604
  Receipt Date: 20130604
  Transmission Date: 20140414
  Serious: No
  Sender: FDA-Public Use
  Company Number: US-SANOFI-AVENTIS-2012SA052571

PATIENT
  Age: 71 Year
  Sex: Female

DRUGS (5)
  1. LANTUS SOLOSTAR [Suspect]
     Dosage: DOSE:10 UNIT(S)
     Route: 058
     Dates: start: 20120716, end: 20120718
  2. LANTUS SOLOSTAR [Suspect]
     Dosage: DOSE:26 UNIT(S)
     Route: 058
     Dates: start: 201208
  3. SOLOSTAR [Suspect]
     Dates: start: 20120716, end: 20120718
  4. SOLOSTAR [Suspect]
     Dates: start: 201208
  5. INSULIN DETEMIR [Concomitant]
     Dates: start: 201207

REACTIONS (4)
  - Weight decreased [Not Recovered/Not Resolved]
  - Hypersensitivity [Recovered/Resolved]
  - Rash [Recovered/Resolved]
  - Injection site pain [Recovered/Resolved]
